FAERS Safety Report 7361368-X (Version None)
Quarter: 2011Q1

REPORT INFORMATION
  Report Type: 
  Country: None (occurrence: None)
  Receive Date: 20110318
  Receipt Date: 20110307
  Transmission Date: 20110831
  Serious: Yes (Other)
  Sender: FDA-Public Use
  Company Number: FR-EISAI INC-E3810-04213-SPO-FR

PATIENT
  Sex: Female

DRUGS (2)
  1. PARIET (RABEPRAZOLE) [Suspect]
     Indication: DUODENAL ULCER
     Route: 048
     Dates: start: 20101025, end: 20101029
  2. PARIET (RABEPRAZOLE) [Suspect]
     Route: 048
     Dates: start: 20101022, end: 20101025

REACTIONS (2)
  - VISUAL IMPAIRMENT [None]
  - HEADACHE [None]
